FAERS Safety Report 6526820-5 (Version None)
Quarter: 2009Q4

REPORT INFORMATION
  Report Type: 
  Country: None (occurrence: None)
  Receive Date: 20091230
  Receipt Date: 20091216
  Transmission Date: 20100525
  Serious: Yes (Other)
  Sender: FDA-Public Use
  Company Number: 1000010935

PATIENT
  Age: 84 Year
  Sex: Female

DRUGS (4)
  1. ESCITALOPRAM [Suspect]
     Dosage: 5 MG (5 MG, 1 IN 1 D), ORAL
     Route: 048
  2. ESCITALOPRAM [Suspect]
     Dosage: 10 MG (10 MG, 1 IN 1 D),ORAL
  3. EBIXA (TABLETS) [Concomitant]
  4. TIAPRIDAL [Concomitant]

REACTIONS (2)
  - AGITATION [None]
  - POOR QUALITY SLEEP [None]
